FAERS Safety Report 17672520 (Version 1)
Quarter: 2020Q2

REPORT INFORMATION
  Report Type: Spontaneous
  Country: US (occurrence: US)
  Receive Date: 20200415
  Receipt Date: 20200415
  Transmission Date: 20200713
  Serious: Yes (Death)
  Sender: FDA-Public Use
  Company Number: US-ROCHE-2453760

PATIENT

DRUGS (2)
  1. STERILE WATER [Concomitant]
     Active Substance: WATER
     Route: 065
  2. ACTIVASE [Suspect]
     Active Substance: ALTEPLASE
     Indication: ISCHAEMIC STROKE
     Dosage: VIAL   INITIAL 15 MG BOLUS
     Route: 042
     Dates: start: 20150810

REACTIONS (1)
  - Death [Fatal]
